FAERS Safety Report 7693695-0 (Version None)
Quarter: 2011Q3

REPORT INFORMATION
  Report Type: 
  Country: None (occurrence: None)
  Receive Date: 20110819
  Receipt Date: 20110810
  Transmission Date: 20111222
  Serious: Yes (Hospitalization, Other)
  Sender: FDA-Public Use
  Company Number: BR-JNJFOC-20110801557

PATIENT
  Sex: Female

DRUGS (2)
  1. XARELTO [Suspect]
     Indication: HIP FRACTURE
     Route: 048
  2. ANALGESICS [Concomitant]

REACTIONS (2)
  - INFECTION [None]
  - POST PROCEDURAL HAEMORRHAGE [None]
